FAERS Safety Report 5376988-1 (Version None)
Quarter: 2007Q2

REPORT INFORMATION
  Report Type: 
  Country: None (occurrence: None)
  Receive Date: 20070530
  Receipt Date: 20070215
  Transmission Date: 20071010
  Serious: No
  Sender: FDA-Public Use
  Company Number: 2007PV030144

PATIENT
  Age: 57 Year
  Sex: Female

DRUGS (3)
  1. BYETTA [Suspect]
     Indication: POLYCYSTIC OVARIES
     Dosage: 5 MCG;BID;SC
     Route: 058
     Dates: start: 20070101, end: 20070101
  2. BYETTA [Suspect]
     Indication: POLYCYSTIC OVARIES
     Dosage: 5 MCG;BID;SC
     Route: 058
     Dates: start: 20070212
  3. POTASSIUM CHLORIDE [Concomitant]

REACTIONS (1)
  - ARTHRALGIA [None]
